FAERS Safety Report 22597010 (Version 1)
Quarter: 2023Q2

REPORT INFORMATION
  Report Type: Spontaneous
  Country: US (occurrence: US)
  Receive Date: 20230613
  Receipt Date: 20230613
  Transmission Date: 20230722
  Serious: No
  Sender: FDA-Public Use
  Company Number: US-BAUSCHBL-2023BNL005023

PATIENT
  Age: 64 Year
  Sex: Female

DRUGS (3)
  1. TIMOPTIC [Suspect]
     Active Substance: TIMOLOL MALEATE
     Indication: Product used for unknown indication
     Dosage: MORNING AND EVENING
     Route: 047
     Dates: start: 2023
  2. TIMOPTIC [Suspect]
     Active Substance: TIMOLOL MALEATE
  3. TIMOLOL MALEATE [Suspect]
     Active Substance: TIMOLOL MALEATE
     Indication: Product used for unknown indication
     Dosage: MORNING AND NIGHT
     Route: 047
     Dates: start: 2023, end: 2023

REACTIONS (6)
  - Visual impairment [Recovered/Resolved]
  - Instillation site discharge [Recovered/Resolved]
  - Instillation site irritation [Recovered/Resolved]
  - Product substitution issue [Unknown]
  - Product availability issue [Unknown]
  - Extra dose administered [Unknown]

NARRATIVE: CASE EVENT DATE: 20230101
